APPROVED DRUG PRODUCT: VEXOL
Active Ingredient: RIMEXOLONE
Strength: 1%
Dosage Form/Route: SUSPENSION/DROPS;OPHTHALMIC
Application: N020474 | Product #001
Applicant: HARROW EYE LLC
Approved: Dec 30, 1994 | RLD: No | RS: No | Type: DISCN